FAERS Safety Report 6587991-8 (Version None)
Quarter: 2010Q1

REPORT INFORMATION
  Report Type: 
  Country: None (occurrence: None)
  Receive Date: 20100218
  Receipt Date: 20100209
  Transmission Date: 20100710
  Serious: Yes (Hospitalization)
  Sender: FDA-Public Use
  Company Number: FR-SANOFI-AVENTIS-2010SA007452

PATIENT
  Age: 53 Year
  Sex: Male

DRUGS (4)
  1. STILNOX [Suspect]
     Indication: INSOMNIA
     Route: 048
  2. AERIUS [Suspect]
     Route: 048
  3. AVLOCARDYL [Suspect]
     Route: 048
  4. ESOMEPRAZOLE MAGNESIUM [Suspect]
     Route: 048

REACTIONS (1)
  - SQUAMOUS CELL CARCINOMA [None]
